FAERS Safety Report 8031797-X (Version None)
Quarter: 2012Q1

REPORT INFORMATION
  Report Type: 
  Country: None (occurrence: None)
  Receive Date: 20120109
  Receipt Date: 20120104
  Transmission Date: 20120608
  Serious: Yes (Hospitalization, Other)
  Sender: FDA-Public Use
  Company Number: US-ROCHE-1027833

PATIENT
  Sex: Female
  Weight: 69.1 kg

DRUGS (9)
  1. SYMBICORT [Concomitant]
  2. FLOVENT [Concomitant]
  3. OMEPRAZOLE [Concomitant]
  4. OMALIZUMAB [Suspect]
     Dates: start: 20120104
  5. MAXAIR [Concomitant]
  6. DIOVAN [Concomitant]
  7. FLONASE [Concomitant]
  8. OMALIZUMAB [Suspect]
     Indication: ASTHMA
     Route: 058
     Dates: start: 20111024, end: 20111025
  9. PREMARIN [Concomitant]

REACTIONS (2)
  - KNEE ARTHROPLASTY [None]
  - ASTHMA [None]
